FAERS Safety Report 12956422 (Version 2)
Quarter: 2016Q4

REPORT INFORMATION
  Report Type: Spontaneous
  Country: US (occurrence: US)
  Receive Date: 20161118
  Receipt Date: 20161122
  Transmission Date: 20170207
  Serious: Yes (Other)
  Sender: FDA-Public Use
  Company Number: US-PFIZER INC-2016535492

PATIENT
  Age: 59 Year
  Sex: Female
  Weight: 52 kg

DRUGS (8)
  1. MINIVELLE [Concomitant]
     Active Substance: ESTRADIOL
     Indication: OESTROGEN THERAPY
     Dosage: 0.075 MG, 2X/WEEK, ^0.075MG PTT, PATCH CHANGED ON SUNDAY AND WEDNESDAY^
  2. LYRICA [Suspect]
     Active Substance: PREGABALIN
     Indication: FIBROMYALGIA
     Dosage: 100 MG, 3X/DAY
  3. LYRICA [Suspect]
     Active Substance: PREGABALIN
     Indication: PAIN IN EXTREMITY
     Dosage: 200 MG, 3X/DAY
     Dates: start: 201601
  4. METHADONE [Concomitant]
     Active Substance: METHADONE HYDROCHLORIDE
     Dosage: 5 MG, 4X/DAY (1/2 TABLET 4 TIMES PER DAY)
     Dates: start: 201601, end: 20161108
  5. ZETIA [Concomitant]
     Active Substance: EZETIMIBE
     Indication: BLOOD TRIGLYCERIDES INCREASED
     Dosage: 10 MG, 1X/DAY, ^AT BEDTIME^
  6. TRAZODONE [Concomitant]
     Active Substance: TRAZODONE HYDROCHLORIDE
     Indication: DEPRESSION
     Dosage: 150 MG, 1X/DAY, ^AT BEDTIME^
  7. CLONAZEPAM. [Concomitant]
     Active Substance: CLONAZEPAM
     Indication: RESTLESS LEGS SYNDROME
     Dosage: 1 MG, DAILY, ^0.5MG TABLET, 2 TABLETS AT BEDTIME^
  8. LYRICA [Suspect]
     Active Substance: PREGABALIN
     Dosage: 500 MG, DAILY, ^200MG OF LYRICA IN THE MORNING, 100MG IN THE AFTERNOON, AND 200MG IN THE EVENING^

REACTIONS (5)
  - Neuropathy peripheral [Unknown]
  - Hypersomnia [Recovering/Resolving]
  - Condition aggravated [Unknown]
  - Neuralgia [Unknown]
  - Lung carcinoma cell type unspecified stage III [Recovering/Resolving]

NARRATIVE: CASE EVENT DATE: 201603
